FAERS Safety Report 24976038 (Version 1)
Quarter: 2025Q1

REPORT INFORMATION
  Report Type: Spontaneous
  Country: US (occurrence: US)
  Receive Date: 20250217
  Receipt Date: 20250217
  Transmission Date: 20250409
  Serious: Yes (Hospitalization, Other)
  Sender: DR REDDYS
  Company Number: US-DRL-USA-USA/2025/02/002018

PATIENT
  Age: 26 Year
  Sex: Male

DRUGS (3)
  1. CIPROFLOXACIN [Suspect]
     Active Substance: CIPROFLOXACIN
     Indication: Post streptococcal glomerulonephritis
  2. AZITHROMYCIN [Concomitant]
     Active Substance: AZITHROMYCIN
     Indication: Post streptococcal glomerulonephritis
  3. CEFDINIR [Concomitant]
     Active Substance: CEFDINIR
     Indication: Post streptococcal glomerulonephritis

REACTIONS (1)
  - Drug ineffective for unapproved indication [Unknown]
